FAERS Safety Report 16972737 (Version 1)
Quarter: 2019Q4

REPORT INFORMATION
  Report Type: Spontaneous
  Country: US (occurrence: US)
  Receive Date: 20191030
  Receipt Date: 20191030
  Transmission Date: 20200122
  Serious: No
  Sender: FDA-Public Use
  Company Number: US-B.I. PHARMACEUTICALS,INC./RIDGEFIELD-2019-US-108839

PATIENT
  Age: 58 Year
  Sex: Male

DRUGS (1)
  1. OFEV [Suspect]
     Active Substance: NINTEDANIB
     Indication: IDIOPATHIC PULMONARY FIBROSIS
     Route: 065
     Dates: start: 2007

REACTIONS (8)
  - Panic disorder [Unknown]
  - Anxiety [Unknown]
  - Discomfort [Unknown]
  - Dyspnoea [Unknown]
  - Post-traumatic stress disorder [Unknown]
  - Respiration abnormal [Unknown]
  - Ventricular extrasystoles [Unknown]
  - Asthenia [Unknown]

NARRATIVE: CASE EVENT DATE: 201908
